FAERS Safety Report 6152849-5 (Version None)
Quarter: 2009Q2

REPORT INFORMATION
  Report Type: 
  Country: None (occurrence: None)
  Receive Date: 20090413
  Receipt Date: 20090403
  Transmission Date: 20091009
  Serious: Yes (Other)
  Sender: FDA-Public Use
  Company Number: US-PFIZER INC-2009193433

PATIENT
  Sex: Female
  Weight: 63.039 kg

DRUGS (3)
  1. LIPITOR [Suspect]
     Indication: BLOOD CHOLESTEROL INCREASED
  2. NORVASC [Concomitant]
  3. TOPROL-XL [Concomitant]

REACTIONS (5)
  - BURNING SENSATION [None]
  - FIBROMYALGIA [None]
  - MALAISE [None]
  - PAIN IN EXTREMITY [None]
  - VEIN DISORDER [None]
